FAERS Safety Report 6246586-6 (Version None)
Quarter: 2009Q2

REPORT INFORMATION
  Report Type: 
  Country: None (occurrence: None)
  Receive Date: 20090624
  Receipt Date: 20090624
  Transmission Date: 20091009
  Serious: Yes (Life-Threatening, Other)
  Sender: FDA-Public Use
  Company Number: None

PATIENT
  Age: 55 Year
  Sex: Male
  Weight: 77.1115 kg

DRUGS (1)
  1. CEREFOLIN NAC N/A PAMLAB LLC COVINGTON, LA 70433 [Suspect]
     Indication: BIPOLAR DISORDER
     Dosage: 1/2 PILL DAILY PO
     Route: 048
     Dates: start: 20090606, end: 20090611

REACTIONS (5)
  - AGGRESSION [None]
  - IRRITABILITY [None]
  - PERSONALITY CHANGE [None]
  - RESTLESSNESS [None]
  - SUICIDAL IDEATION [None]
